FAERS Safety Report 8990830 (Version 1)
Quarter: 2012Q4

REPORT INFORMATION
  Report Type: Spontaneous
  Country: US (occurrence: None)
  Receive Date: 20121226
  Receipt Date: 20121226
  Transmission Date: 20130627
  Serious: Yes (Life-Threatening, Hospitalization)
  Sender: FDA-Public Use
  Company Number: None

PATIENT
  Age: 33 Year
  Sex: Female
  Weight: 90.72 kg

DRUGS (1)
  1. PARAGARD [Suspect]
     Indication: BIRTH CONTROL
     Dates: start: 20120222, end: 20121129

REACTIONS (5)
  - Ectopic pregnancy with intrauterine device [None]
  - Exposure during pregnancy [None]
  - Ectopic pregnancy termination [None]
  - Ruptured ectopic pregnancy [None]
  - Fallopian tube disorder [None]
